FAERS Safety Report 5314242-4 (Version None)
Quarter: 2007Q2

REPORT INFORMATION
  Report Type: 
  Country: None (occurrence: None)
  Receive Date: 20070425
  Receipt Date: 20070413
  Transmission Date: 20071010
  Serious: Yes (Life-Threatening, Other)
  Sender: FDA-Public Use
  Company Number: 26561

PATIENT
  Age: 49 Year
  Sex: Male
  Weight: 78.0187 kg

DRUGS (2)
  1. NIASPAN [Suspect]
     Indication: HIGH DENSITY LIPOPROTEIN DECREASED
     Dosage: 750 MG QD PO
     Route: 048
     Dates: end: 20070412
  2. ASPIRIN [Concomitant]

REACTIONS (3)
  - CHOKING [None]
  - FLUSHING [None]
  - LARYNGEAL OEDEMA [None]
